FAERS Safety Report 24896973 (Version 1)
Quarter: 2025Q1

REPORT INFORMATION
  Report Type: Spontaneous
  Country: CA (occurrence: CA)
  Receive Date: 20250128
  Receipt Date: 20250128
  Transmission Date: 20250408
  Serious: Yes (Other)
  Sender: ALEXION PHARMACEUTICALS
  Company Number: CA-HALEON-2224296

PATIENT
  Age: 53 Year

DRUGS (286)
  1. ESOMEPRAZOLE [Suspect]
     Active Substance: ESOMEPRAZOLE
     Indication: Gastritis
     Route: 065
  2. CHOLECALCIFEROL [Suspect]
     Active Substance: CHOLECALCIFEROL
     Indication: Product used for unknown indication
     Route: 065
  3. ACETAMINOPHEN [Suspect]
     Active Substance: ACETAMINOPHEN
     Route: 065
  4. ACETAMINOPHEN [Suspect]
     Active Substance: ACETAMINOPHEN
     Route: 065
  5. HYDROCORTISONE [Suspect]
     Active Substance: HYDROCORTISONE
     Route: 065
  6. HYDROCORTISONE [Suspect]
     Active Substance: HYDROCORTISONE
  7. HYDROCORTISONE [Suspect]
     Active Substance: HYDROCORTISONE
  8. HYDROCORTISONE [Suspect]
     Active Substance: HYDROCORTISONE
  9. HYDROCORTISONE [Suspect]
     Active Substance: HYDROCORTISONE
     Route: 065
  10. HYDROCORTISONE [Suspect]
     Active Substance: HYDROCORTISONE
     Route: 065
  11. HYDROCORTISONE [Suspect]
     Active Substance: HYDROCORTISONE
  12. HYDROCORTISONE [Suspect]
     Active Substance: HYDROCORTISONE
  13. HYDROCORTISONE [Suspect]
     Active Substance: HYDROCORTISONE
  14. HYDROCORTISONE [Suspect]
     Active Substance: HYDROCORTISONE
     Route: 065
  15. VITAMIN D3 [Suspect]
     Active Substance: CHOLECALCIFEROL
     Indication: Product used for unknown indication
     Route: 065
  16. VITAMIN D3 [Suspect]
     Active Substance: CHOLECALCIFEROL
     Route: 065
  17. ADALIMUMAB [Suspect]
     Active Substance: ADALIMUMAB
  18. ADALIMUMAB [Suspect]
     Active Substance: ADALIMUMAB
     Route: 065
  19. ADALIMUMAB [Suspect]
     Active Substance: ADALIMUMAB
     Route: 065
  20. ADALIMUMAB [Suspect]
     Active Substance: ADALIMUMAB
  21. ADALIMUMAB [Suspect]
     Active Substance: ADALIMUMAB
  22. FUROSEMIDE [Suspect]
     Active Substance: FUROSEMIDE
     Route: 065
  23. FUROSEMIDE [Suspect]
     Active Substance: FUROSEMIDE
     Route: 065
  24. GABAPENTIN [Suspect]
     Active Substance: GABAPENTIN
     Route: 065
  25. GABAPENTIN [Suspect]
     Active Substance: GABAPENTIN
     Route: 065
  26. HUMIRA [Suspect]
     Active Substance: ADALIMUMAB
     Indication: Deep vein thrombosis
  27. HUMIRA [Suspect]
     Active Substance: ADALIMUMAB
     Indication: Crohn^s disease
     Route: 065
  28. HUMIRA [Suspect]
     Active Substance: ADALIMUMAB
     Indication: Colitis ulcerative
     Route: 065
  29. HUMIRA [Suspect]
     Active Substance: ADALIMUMAB
     Route: 065
  30. HUMIRA [Suspect]
     Active Substance: ADALIMUMAB
     Route: 065
  31. HUMIRA [Suspect]
     Active Substance: ADALIMUMAB
  32. INFLECTRA [Suspect]
     Active Substance: INFLIXIMAB-DYYB
     Indication: Crohn^s disease
  33. INFLECTRA [Suspect]
     Active Substance: INFLIXIMAB-DYYB
     Indication: Colitis ulcerative
     Route: 065
  34. INFLECTRA [Suspect]
     Active Substance: INFLIXIMAB-DYYB
  35. INFLECTRA [Suspect]
     Active Substance: INFLIXIMAB-DYYB
  36. INFLECTRA [Suspect]
     Active Substance: INFLIXIMAB-DYYB
     Route: 065
  37. INFLECTRA [Suspect]
     Active Substance: INFLIXIMAB-DYYB
  38. INFLIXIMAB [Suspect]
     Active Substance: INFLIXIMAB
     Indication: Crohn^s disease
     Route: 065
  39. INFLIXIMAB [Suspect]
     Active Substance: INFLIXIMAB
     Indication: Colitis ulcerative
     Route: 065
  40. INFLIXIMAB [Suspect]
     Active Substance: INFLIXIMAB
  41. INFLIXIMAB [Suspect]
     Active Substance: INFLIXIMAB
  42. INFLIXIMAB [Suspect]
     Active Substance: INFLIXIMAB
  43. INFLIXIMAB [Suspect]
     Active Substance: INFLIXIMAB
  44. INFLIXIMAB [Suspect]
     Active Substance: INFLIXIMAB
     Route: 065
  45. INFLIXIMAB [Suspect]
     Active Substance: INFLIXIMAB
  46. INFLIXIMAB [Suspect]
     Active Substance: INFLIXIMAB
  47. INFLIXIMAB [Suspect]
     Active Substance: INFLIXIMAB
  48. INFLIXIMAB [Suspect]
     Active Substance: INFLIXIMAB
     Route: 065
  49. INFLIXIMAB [Suspect]
     Active Substance: INFLIXIMAB
  50. INFLIXIMAB [Suspect]
     Active Substance: INFLIXIMAB
  51. INFLIXIMAB [Suspect]
     Active Substance: INFLIXIMAB
  52. INFLIXIMAB [Suspect]
     Active Substance: INFLIXIMAB
  53. INFLIXIMAB [Suspect]
     Active Substance: INFLIXIMAB
  54. MESALAMINE [Suspect]
     Active Substance: MESALAMINE
     Route: 065
  55. MESALAMINE [Suspect]
     Active Substance: MESALAMINE
  56. MESALAMINE [Suspect]
     Active Substance: MESALAMINE
  57. MESALAMINE [Suspect]
     Active Substance: MESALAMINE
  58. MESALAMINE [Suspect]
     Active Substance: MESALAMINE
     Route: 065
  59. MESALAMINE [Suspect]
     Active Substance: MESALAMINE
     Route: 065
  60. MESALAMINE [Suspect]
     Active Substance: MESALAMINE
     Route: 065
  61. MESALAMINE [Suspect]
     Active Substance: MESALAMINE
     Route: 065
  62. MESALAMINE [Suspect]
     Active Substance: MESALAMINE
     Route: 065
  63. MESALAMINE [Suspect]
     Active Substance: MESALAMINE
     Route: 065
  64. MESALAMINE [Suspect]
     Active Substance: MESALAMINE
     Route: 065
  65. MESALAMINE [Suspect]
     Active Substance: MESALAMINE
     Route: 065
  66. MESALAMINE [Suspect]
     Active Substance: MESALAMINE
  67. MESALAMINE [Suspect]
     Active Substance: MESALAMINE
     Route: 065
  68. MESALAMINE [Suspect]
     Active Substance: MESALAMINE
     Route: 065
  69. MESALAMINE [Suspect]
     Active Substance: MESALAMINE
     Route: 065
  70. MESALAMINE [Suspect]
     Active Substance: MESALAMINE
     Route: 065
  71. MESALAMINE [Suspect]
     Active Substance: MESALAMINE
  72. MESALAMINE [Suspect]
     Active Substance: MESALAMINE
  73. MESALAMINE [Suspect]
     Active Substance: MESALAMINE
     Route: 065
  74. MESALAMINE [Suspect]
     Active Substance: MESALAMINE
     Route: 065
  75. MESALAMINE [Suspect]
     Active Substance: MESALAMINE
  76. MESALAMINE [Suspect]
     Active Substance: MESALAMINE
     Route: 065
  77. MESALAMINE [Suspect]
     Active Substance: MESALAMINE
     Route: 065
  78. MESALAMINE [Suspect]
     Active Substance: MESALAMINE
     Route: 065
  79. MESALAMINE [Suspect]
     Active Substance: MESALAMINE
     Route: 065
  80. MESALAMINE [Suspect]
     Active Substance: MESALAMINE
     Route: 065
  81. MESALAMINE [Suspect]
     Active Substance: MESALAMINE
     Route: 065
  82. MESALAMINE [Suspect]
     Active Substance: MESALAMINE
     Dosage: 8 DOSAGE FORM, Q8W
     Route: 065
  83. MESALAMINE [Suspect]
     Active Substance: MESALAMINE
  84. MESALAMINE [Suspect]
     Active Substance: MESALAMINE
     Dosage: 2.4 GRAM, QD
     Route: 065
  85. MESALAMINE [Suspect]
     Active Substance: MESALAMINE
  86. MESALAMINE [Suspect]
     Active Substance: MESALAMINE
     Dosage: 6 DOSAGE FORM, QD
  87. RIVAROXABAN [Concomitant]
     Active Substance: RIVAROXABAN
     Indication: Product used for unknown indication
     Route: 065
  88. CRESTOR [Suspect]
     Active Substance: ROSUVASTATIN CALCIUM
     Route: 065
  89. CRESTOR [Suspect]
     Active Substance: ROSUVASTATIN CALCIUM
     Route: 065
  90. CRESTOR [Suspect]
     Active Substance: ROSUVASTATIN CALCIUM
     Route: 065
  91. MESALAMINE [Suspect]
     Active Substance: MESALAMINE
     Indication: Product used for unknown indication
     Route: 065
  92. SULFASALAZINE [Suspect]
     Active Substance: SULFASALAZINE
     Route: 065
  93. SULFASALAZINE [Suspect]
     Active Substance: SULFASALAZINE
     Route: 065
  94. SULFASALAZINE [Suspect]
     Active Substance: SULFASALAZINE
     Route: 065
  95. SULFASALAZINE [Suspect]
     Active Substance: SULFASALAZINE
     Route: 065
  96. SULFASALAZINE [Suspect]
     Active Substance: SULFASALAZINE
  97. SULFASALAZINE [Suspect]
     Active Substance: SULFASALAZINE
     Route: 065
  98. SULFASALAZINE [Suspect]
     Active Substance: SULFASALAZINE
     Route: 065
  99. SULFASALAZINE [Suspect]
     Active Substance: SULFASALAZINE
     Route: 065
  100. SULFASALAZINE [Suspect]
     Active Substance: SULFASALAZINE
     Route: 065
  101. SULFASALAZINE [Suspect]
     Active Substance: SULFASALAZINE
     Route: 065
  102. SULFASALAZINE [Suspect]
     Active Substance: SULFASALAZINE
     Route: 065
  103. SULFASALAZINE [Suspect]
     Active Substance: SULFASALAZINE
  104. TOZINAMERAN [Suspect]
     Active Substance: TOZINAMERAN
     Indication: Product used for unknown indication
     Route: 065
  105. VEDOLIZUMAB [Suspect]
     Active Substance: VEDOLIZUMAB
  106. VYVANSE [Suspect]
     Active Substance: LISDEXAMFETAMINE DIMESYLATE
     Indication: Attention deficit hyperactivity disorder
     Route: 065
  107. AMLODIPINE BESYLATE [Concomitant]
     Active Substance: AMLODIPINE BESYLATE
     Indication: Product used for unknown indication
  108. ASACOL [Suspect]
     Active Substance: MESALAMINE
     Indication: Colitis ulcerative
     Route: 065
  109. ASACOL [Suspect]
     Active Substance: MESALAMINE
     Route: 065
  110. ASACOL [Suspect]
     Active Substance: MESALAMINE
     Dosage: 1 DOSAGE FORM, QD
     Route: 065
  111. ASACOL [Suspect]
     Active Substance: MESALAMINE
     Dosage: 3 DOSAGE FORM, QD
     Route: 065
  112. ASACOL [Suspect]
     Active Substance: MESALAMINE
     Dosage: 1 DOSAGE FORM, Q12H
     Route: 065
  113. ASACOL [Suspect]
     Active Substance: MESALAMINE
     Dosage: 1 DOSAGE FORM, QD
  114. ASACOL [Suspect]
     Active Substance: MESALAMINE
     Dosage: 40 MILLIGRAM, QD
     Route: 065
  115. ASACOL [Suspect]
     Active Substance: MESALAMINE
     Dosage: 50 MILLIGRAM, QD
  116. ASACOL [Suspect]
     Active Substance: MESALAMINE
     Dosage: 1 DOSAGE FORM, QD
  117. ASACOL [Suspect]
     Active Substance: MESALAMINE
     Dosage: 1 DOSAGE FORM, QD
     Route: 065
  118. ASACOL [Suspect]
     Active Substance: MESALAMINE
     Route: 065
  119. ASACOL [Suspect]
     Active Substance: MESALAMINE
     Route: 065
  120. ASACOL [Suspect]
     Active Substance: MESALAMINE
     Route: 065
  121. ASACOL [Suspect]
     Active Substance: MESALAMINE
     Route: 065
  122. ASACOL [Suspect]
     Active Substance: MESALAMINE
     Route: 065
  123. ASACOL [Suspect]
     Active Substance: MESALAMINE
     Route: 065
  124. ASACOL [Suspect]
     Active Substance: MESALAMINE
     Route: 065
  125. ASPIRIN [Suspect]
     Active Substance: ASPIRIN
     Route: 065
  126. ATORVASTATIN CALCIUM [Concomitant]
     Active Substance: ATORVASTATIN CALCIUM
     Indication: Product used for unknown indication
     Route: 065
  127. BETNOVATE [Concomitant]
     Active Substance: BETAMETHASONE
     Indication: Product used for unknown indication
  128. BISOPROLOL [Concomitant]
     Active Substance: BISOPROLOL
     Indication: Product used for unknown indication
     Route: 065
  129. PULMICORT TURBUHALER [Suspect]
     Active Substance: BUDESONIDE
  130. PULMICORT TURBUHALER [Suspect]
     Active Substance: BUDESONIDE
     Dosage: 1 DOSAGE FORM, QD
  131. PULMICORT TURBUHALER [Suspect]
     Active Substance: BUDESONIDE
     Route: 065
  132. PULMICORT TURBUHALER [Suspect]
     Active Substance: BUDESONIDE
  133. PULMICORT TURBUHALER [Suspect]
     Active Substance: BUDESONIDE
     Dosage: 1 DOSAGE FORM, QD
  134. PULMICORT TURBUHALER [Suspect]
     Active Substance: BUDESONIDE
     Dosage: 1 DOSAGE FORM, QD
     Route: 065
  135. PULMICORT TURBUHALER [Suspect]
     Active Substance: BUDESONIDE
  136. PULMICORT TURBUHALER [Suspect]
     Active Substance: BUDESONIDE
  137. PULMICORT TURBUHALER [Suspect]
     Active Substance: BUDESONIDE
  138. PULMICORT TURBUHALER [Suspect]
     Active Substance: BUDESONIDE
     Route: 065
  139. PULMICORT TURBUHALER [Suspect]
     Active Substance: BUDESONIDE
  140. PULMICORT TURBUHALER [Suspect]
     Active Substance: BUDESONIDE
     Route: 065
  141. CALCIUM CARBONATE [Concomitant]
     Active Substance: CALCIUM CARBONATE
     Indication: Product used for unknown indication
  142. CANDESARTAN CILEXETIL [Suspect]
     Active Substance: CANDESARTAN CILEXETIL
  143. ASTRAZENECA COVID-19 VACCINE [Suspect]
     Active Substance: AZD-1222
     Indication: COVID-19 immunisation
     Route: 065
  144. ASTRAZENECA COVID-19 VACCINE [Suspect]
     Active Substance: AZD-1222
     Route: 065
  145. ASTRAZENECA COVID-19 VACCINE [Suspect]
     Active Substance: AZD-1222
     Route: 065
  146. ASTRAZENECA COVID-19 VACCINE [Suspect]
     Active Substance: AZD-1222
     Route: 065
  147. ASTRAZENECA COVID-19 VACCINE [Suspect]
     Active Substance: AZD-1222
     Route: 065
  148. ASTRAZENECA COVID-19 VACCINE [Suspect]
     Active Substance: AZD-1222
     Route: 065
  149. ASTRAZENECA COVID-19 VACCINE [Suspect]
     Active Substance: AZD-1222
     Route: 065
  150. ASTRAZENECA COVID-19 VACCINE [Suspect]
     Active Substance: AZD-1222
     Route: 065
  151. ASTRAZENECA COVID-19 VACCINE [Suspect]
     Active Substance: AZD-1222
     Route: 065
  152. ASTRAZENECA COVID-19 VACCINE [Suspect]
     Active Substance: AZD-1222
     Route: 065
  153. ASTRAZENECA COVID-19 VACCINE [Suspect]
     Active Substance: AZD-1222
     Route: 065
  154. ASTRAZENECA COVID-19 VACCINE [Suspect]
     Active Substance: AZD-1222
     Route: 065
  155. ASTRAZENECA COVID-19 VACCINE [Suspect]
     Active Substance: AZD-1222
     Route: 065
  156. ASTRAZENECA COVID-19 VACCINE [Suspect]
     Active Substance: AZD-1222
     Route: 065
  157. COMIRNATY (TOZINAMERAN) [Suspect]
     Active Substance: TOZINAMERAN
     Indication: Product used for unknown indication
     Route: 065
  158. CORTIFOAM [Suspect]
     Active Substance: HYDROCORTISONE ACETATE
     Indication: Deep vein thrombosis
     Dosage: AEROSOL, FOAM
     Route: 065
  159. CORTIFOAM [Suspect]
     Active Substance: HYDROCORTISONE ACETATE
     Indication: Colitis ulcerative
     Dosage: AEROSOL, FOAM
  160. CORTIFOAM [Suspect]
     Active Substance: HYDROCORTISONE ACETATE
     Route: 065
  161. CORTIFOAM [Suspect]
     Active Substance: HYDROCORTISONE ACETATE
     Route: 065
  162. CORTIFOAM [Suspect]
     Active Substance: HYDROCORTISONE ACETATE
     Dosage: AEROSOL, FOAM
     Route: 065
  163. CORTIFOAM [Suspect]
     Active Substance: HYDROCORTISONE ACETATE
     Route: 065
  164. CORTIFOAM [Suspect]
     Active Substance: HYDROCORTISONE ACETATE
  165. CORTIFOAM [Suspect]
     Active Substance: HYDROCORTISONE ACETATE
  166. HYDROCORTISONE ACETATE [Suspect]
     Active Substance: HYDROCORTISONE ACETATE
  167. HYDROCORTISONE ACETATE [Suspect]
     Active Substance: HYDROCORTISONE ACETATE
  168. HYDROCORTISONE ACETATE [Suspect]
     Active Substance: HYDROCORTISONE ACETATE
     Route: 065
  169. HYDROCORTISONE ACETATE [Suspect]
     Active Substance: HYDROCORTISONE ACETATE
     Dosage: 1 DOSAGE FORM, QD
     Route: 065
  170. HYDROCORTISONE ACETATE [Suspect]
     Active Substance: HYDROCORTISONE ACETATE
     Dosage: 8 DOSAGE FORM, Q8W
     Route: 065
  171. HYDROCORTISONE ACETATE [Suspect]
     Active Substance: HYDROCORTISONE ACETATE
     Dosage: 1 DOSAGE FORM, QD
  172. HYDROCORTISONE ACETATE [Suspect]
     Active Substance: HYDROCORTISONE ACETATE
     Dosage: 1 DOSAGE FORM, QD
     Route: 065
  173. HYDROCORTISONE ACETATE [Suspect]
     Active Substance: HYDROCORTISONE ACETATE
     Dosage: 8 DOSAGE FORM, QD
  174. HYDROCORTISONE ACETATE [Suspect]
     Active Substance: HYDROCORTISONE ACETATE
     Dosage: 8 DOSAGE FORM, QD
  175. HYDROCORTISONE ACETATE [Suspect]
     Active Substance: HYDROCORTISONE ACETATE
     Route: 065
  176. HYDROCORTISONE ACETATE [Suspect]
     Active Substance: HYDROCORTISONE ACETATE
     Dosage: 8 DOSAGE FORM, Q8W
  177. CORTISONE [Suspect]
     Active Substance: CORTISONE
     Route: 065
  178. CORTISONE [Suspect]
     Active Substance: CORTISONE
  179. CORTISONE [Suspect]
     Active Substance: CORTISONE
  180. CORTISONE [Suspect]
     Active Substance: CORTISONE
     Route: 065
  181. CORTISONE [Suspect]
     Active Substance: CORTISONE
  182. CORTISONE [Suspect]
     Active Substance: CORTISONE
  183. CORTISONE [Suspect]
     Active Substance: CORTISONE
     Route: 065
  184. CORTISONE [Suspect]
     Active Substance: CORTISONE
     Route: 065
  185. CORTISONE [Suspect]
     Active Substance: CORTISONE
  186. CORTISONE [Suspect]
     Active Substance: CORTISONE
  187. CORTISONE [Suspect]
     Active Substance: CORTISONE
     Route: 065
  188. CORTISONE [Suspect]
     Active Substance: CORTISONE
  189. DAPAGLIFLOZIN [Suspect]
     Active Substance: DAPAGLIFLOZIN
     Indication: Ill-defined disorder
     Route: 065
  190. DAPAGLIFLOZIN [Suspect]
     Active Substance: DAPAGLIFLOZIN
     Indication: Cardiac failure chronic
  191. DESOXIMETASONE [Suspect]
     Active Substance: DESOXIMETASONE
     Indication: Crohn^s disease
     Route: 065
  192. DESOXIMETASONE [Suspect]
     Active Substance: DESOXIMETASONE
     Route: 065
  193. DESOXIMETASONE [Suspect]
     Active Substance: DESOXIMETASONE
     Route: 065
  194. DESOXIMETASONE [Suspect]
     Active Substance: DESOXIMETASONE
     Route: 065
  195. DESOXIMETASONE [Suspect]
     Active Substance: DESOXIMETASONE
     Route: 065
  196. DORZOLAMIDE [Concomitant]
     Active Substance: DORZOLAMIDE
     Indication: Product used for unknown indication
  197. LISDEXAMFETAMINE DIMESYLATE [Suspect]
     Active Substance: LISDEXAMFETAMINE DIMESYLATE
     Indication: Product used for unknown indication
     Route: 065
  198. EMPAGLIFLOZIN [Concomitant]
     Active Substance: EMPAGLIFLOZIN
     Indication: Product used for unknown indication
     Route: 065
  199. ENTYVIO [Suspect]
     Active Substance: VEDOLIZUMAB
     Indication: Deep vein thrombosis
     Route: 065
  200. ENTYVIO [Suspect]
     Active Substance: VEDOLIZUMAB
     Indication: Colitis ulcerative
  201. ENTYVIO [Suspect]
     Active Substance: VEDOLIZUMAB
  202. ENTYVIO [Suspect]
     Active Substance: VEDOLIZUMAB
     Route: 065
  203. ENTYVIO [Suspect]
     Active Substance: VEDOLIZUMAB
     Route: 065
  204. ENTYVIO [Suspect]
     Active Substance: VEDOLIZUMAB
  205. ENTYVIO [Suspect]
     Active Substance: VEDOLIZUMAB
  206. ENTYVIO [Suspect]
     Active Substance: VEDOLIZUMAB
     Route: 065
  207. ENTYVIO [Suspect]
     Active Substance: VEDOLIZUMAB
  208. ENTYVIO [Suspect]
     Active Substance: VEDOLIZUMAB
  209. EPINEPHRINE [Suspect]
     Active Substance: EPINEPHRINE
     Route: 065
  210. ESCITALOPRAM [Suspect]
     Active Substance: ESCITALOPRAM OXALATE
     Indication: Product used for unknown indication
     Route: 065
  211. ESCITALOPRAM [Suspect]
     Active Substance: ESCITALOPRAM OXALATE
     Dosage: 10 MILLIGRAM, QD
     Route: 065
  212. FELODIPINE [Suspect]
     Active Substance: FELODIPINE
  213. FELODIPINE [Suspect]
     Active Substance: FELODIPINE
  214. FESOTERODINE [Concomitant]
     Active Substance: FESOTERODINE
     Indication: Product used for unknown indication
  215. FOLIC ACID [Concomitant]
     Active Substance: FOLIC ACID
     Indication: Product used for unknown indication
  216. LANSOPRAZOLE [Concomitant]
     Active Substance: LANSOPRAZOLE
     Indication: Product used for unknown indication
  217. LATANOPROST [Concomitant]
     Active Substance: LATANOPROST
     Indication: Product used for unknown indication
  218. LEVOTHYROXINE SODIUM [Suspect]
     Active Substance: LEVOTHYROXINE SODIUM
     Route: 065
  219. LEVOTHYROXINE SODIUM [Suspect]
     Active Substance: LEVOTHYROXINE SODIUM
     Route: 065
  220. LYRICA [Concomitant]
     Active Substance: PREGABALIN
     Indication: Product used for unknown indication
  221. POLYETHYLENE GLYCOL 3350 [Concomitant]
     Active Substance: POLYETHYLENE GLYCOL 3350
     Indication: Product used for unknown indication
     Route: 065
  222. MEBEVERINE [Suspect]
     Active Substance: MEBEVERINE
     Indication: Product used for unknown indication
     Route: 065
  223. MEBEVERINE [Suspect]
     Active Substance: MEBEVERINE
     Route: 065
  224. MESALAMINE [Suspect]
     Active Substance: MESALAMINE
     Indication: Colitis ulcerative
     Route: 065
  225. MESALAMINE [Suspect]
     Active Substance: MESALAMINE
     Route: 065
  226. MESALAMINE [Suspect]
     Active Substance: MESALAMINE
     Route: 065
  227. MESALAMINE [Suspect]
     Active Substance: MESALAMINE
     Route: 065
  228. MESALAMINE [Suspect]
     Active Substance: MESALAMINE
     Route: 065
  229. MESALAMINE [Suspect]
     Active Substance: MESALAMINE
     Route: 065
  230. MESALAMINE [Suspect]
     Active Substance: MESALAMINE
     Route: 065
  231. MESALAMINE [Suspect]
     Active Substance: MESALAMINE
     Route: 065
  232. MESALAMINE [Suspect]
     Active Substance: MESALAMINE
  233. MESALAMINE [Suspect]
     Active Substance: MESALAMINE
     Route: 065
  234. MESALAMINE [Suspect]
     Active Substance: MESALAMINE
     Route: 065
  235. MESALAMINE [Suspect]
     Active Substance: MESALAMINE
  236. MESALAMINE [Suspect]
     Active Substance: MESALAMINE
     Route: 065
  237. MESALAMINE [Suspect]
     Active Substance: MESALAMINE
     Route: 065
  238. MESALAMINE [Suspect]
     Active Substance: MESALAMINE
     Route: 065
  239. MESALAMINE [Suspect]
     Active Substance: MESALAMINE
     Route: 065
  240. MESALAMINE [Suspect]
     Active Substance: MESALAMINE
     Route: 065
  241. MESALAMINE [Suspect]
     Active Substance: MESALAMINE
     Route: 065
  242. MESALAMINE [Suspect]
     Active Substance: MESALAMINE
     Route: 065
  243. MESALAMINE [Suspect]
     Active Substance: MESALAMINE
     Route: 065
  244. MESALAMINE [Suspect]
     Active Substance: MESALAMINE
     Route: 065
  245. METFORMIN [Suspect]
     Active Substance: METFORMIN HYDROCHLORIDE
     Route: 065
  246. METFORMIN [Suspect]
     Active Substance: METFORMIN HYDROCHLORIDE
     Route: 065
  247. METHOTREXATE [Concomitant]
     Active Substance: METHOTREXATE
     Indication: Product used for unknown indication
  248. MESALAMINE [Suspect]
     Active Substance: MESALAMINE
     Indication: Colitis ulcerative
     Route: 065
  249. MESALAMINE [Suspect]
     Active Substance: MESALAMINE
     Route: 065
  250. MESALAMINE [Suspect]
     Active Substance: MESALAMINE
  251. MESALAMINE [Suspect]
     Active Substance: MESALAMINE
  252. MESALAMINE [Suspect]
     Active Substance: MESALAMINE
     Route: 065
  253. PARAFFIN [Concomitant]
     Active Substance: PARAFFIN
     Indication: Product used for unknown indication
  254. NAPHAZOLINE HYDROCHLORIDE [Concomitant]
     Active Substance: NAPHAZOLINE HYDROCHLORIDE
     Indication: Product used for unknown indication
  255. NITROFURANTOIN [Concomitant]
     Active Substance: NITROFURANTOIN
     Indication: Product used for unknown indication
  256. OMEPRAZOLE [Suspect]
     Active Substance: OMEPRAZOLE
     Route: 065
  257. OMEPRAZOLE [Suspect]
     Active Substance: OMEPRAZOLE
     Route: 065
  258. OMEPRAZOLE [Suspect]
     Active Substance: OMEPRAZOLE
     Route: 065
  259. OXYCODONE [Suspect]
     Active Substance: OXYCODONE
     Indication: Product used for unknown indication
     Route: 065
  260. OXYCODONE [Suspect]
     Active Substance: OXYCODONE
     Route: 065
  261. PARA-AMINOSALICYLIC ACID [Suspect]
     Active Substance: AMINOSALICYLIC ACID
     Indication: Product used for unknown indication
  262. ACETAMINOPHEN\CAFFEINE [Concomitant]
     Active Substance: ACETAMINOPHEN\CAFFEINE
     Indication: Product used for unknown indication
     Route: 065
  263. PRAVASTATIN SODIUM [Concomitant]
     Active Substance: PRAVASTATIN SODIUM
     Indication: Product used for unknown indication
  264. PREDNISONE [Suspect]
     Active Substance: PREDNISONE
     Route: 065
  265. PREDNISONE [Suspect]
     Active Substance: PREDNISONE
     Route: 065
  266. PREDNISONE [Suspect]
     Active Substance: PREDNISONE
     Route: 065
  267. PREDNISONE [Suspect]
     Active Substance: PREDNISONE
     Route: 065
  268. PREDNISONE [Suspect]
     Active Substance: PREDNISONE
     Route: 065
  269. PREDNISONE [Suspect]
     Active Substance: PREDNISONE
     Route: 065
  270. RAMIPRIL [Concomitant]
     Active Substance: RAMIPRIL
     Indication: Product used for unknown indication
  271. WARFARIN [Suspect]
     Active Substance: WARFARIN
     Dosage: 1 DOSAGE FORM, QD
  272. WARFARIN [Suspect]
     Active Substance: WARFARIN
     Route: 065
  273. WARFARIN [Suspect]
     Active Substance: WARFARIN
  274. WARFARIN [Suspect]
     Active Substance: WARFARIN
     Dosage: 1 DOSAGE FORM, QD
  275. WARFARIN [Suspect]
     Active Substance: WARFARIN
     Route: 065
  276. WARFARIN [Suspect]
     Active Substance: WARFARIN
  277. WARFARIN [Suspect]
     Active Substance: WARFARIN
  278. WARFARIN [Suspect]
     Active Substance: WARFARIN
  279. WARFARIN [Suspect]
     Active Substance: WARFARIN
  280. WARFARIN [Suspect]
     Active Substance: WARFARIN
  281. WARFARIN [Suspect]
     Active Substance: WARFARIN
  282. WARFARIN [Suspect]
     Active Substance: WARFARIN
  283. WARFARIN [Suspect]
     Active Substance: WARFARIN
  284. WARFARIN [Suspect]
     Active Substance: WARFARIN
  285. WARFARIN [Suspect]
     Active Substance: WARFARIN
     Route: 065
  286. XELJANZ [Concomitant]
     Active Substance: TOFACITINIB CITRATE
     Indication: Product used for unknown indication

REACTIONS (52)
  - Cerebrovascular accident [Unknown]
  - Condition aggravated [Unknown]
  - Tubulointerstitial nephritis [Unknown]
  - Palpitations [Unknown]
  - Catarrh [Unknown]
  - Abdominal discomfort [Unknown]
  - Impaired work ability [Unknown]
  - Parosmia [Unknown]
  - Swollen tongue [Unknown]
  - Deep vein thrombosis [Unknown]
  - Loss of personal independence in daily activities [Unknown]
  - Rhinitis [Unknown]
  - Depression [Unknown]
  - Pain [Unknown]
  - Tinnitus [Unknown]
  - Nightmare [Unknown]
  - Rectal haemorrhage [Unknown]
  - Burns second degree [Unknown]
  - Gingival pain [Unknown]
  - Pulmonary embolism [Unknown]
  - COVID-19 [Unknown]
  - Impaired quality of life [Unknown]
  - Vertigo [Unknown]
  - Migraine [Unknown]
  - Frequent bowel movements [Unknown]
  - Cardiac murmur [Unknown]
  - Somnolence [Unknown]
  - Rash [Unknown]
  - Pain in extremity [Unknown]
  - Colitis ulcerative [Unknown]
  - Confusional state [Unknown]
  - Arthritis [Unknown]
  - Fatigue [Unknown]
  - Haematochezia [Unknown]
  - Weight decreased [Unknown]
  - Stress [Unknown]
  - Hypopnoea [Unknown]
  - Alcohol poisoning [Unknown]
  - Bronchiectasis [Unknown]
  - Systemic lupus erythematosus [Unknown]
  - Pyrexia [Unknown]
  - Steroid dependence [Unknown]
  - Eczema [Unknown]
  - Headache [Unknown]
  - Dysgeusia [Unknown]
  - Accidental overdose [Unknown]
  - Drug ineffective [Unknown]
  - Medication error [Unknown]
  - Inappropriate schedule of product administration [Unknown]
  - Product use in unapproved indication [Unknown]
  - Off label use [Unknown]
  - Intentional product use issue [Unknown]
